FAERS Safety Report 16597469 (Version 1)
Quarter: 2019Q3

REPORT INFORMATION
  Report Type: Spontaneous
  Country: US (occurrence: US)
  Receive Date: 20190606
  Receipt Date: 20190606
  Transmission Date: 20191004
  Serious: Yes (Other)
  Sender: FDA-Public Use
  Company Number: None

PATIENT
  Age: 41 Year
  Sex: Female
  Weight: 78.47 kg

DRUGS (1)
  1. BUPRENORPHINE/NALOXONE [Suspect]
     Active Substance: BUPRENORPHINE\NALOXONE
     Indication: DRUG USE DISORDER
     Dosage: DOSE 8/2MG TABLETS
     Route: 060
     Dates: start: 20190403, end: 20190501

REACTIONS (4)
  - Depression [None]
  - Dizziness [None]
  - Gastrooesophageal reflux disease [None]
  - Oral discomfort [None]

NARRATIVE: CASE EVENT DATE: 20190501
